FAERS Safety Report 8730258 (Version 4)
Quarter: 2015Q4

REPORT INFORMATION
  Report Type: Spontaneous
  Country: FR (occurrence: NL)
  Receive Date: 20120817
  Receipt Date: 20151130
  Transmission Date: 20160305
  Serious: Yes (Hospitalization, Other)
  Sender: FDA-Public Use
  Company Number: FR-MYLANLABS-2006S1011245

PATIENT
  Age: 7 Year
  Sex: Male
  Weight: 35 kg

DRUGS (22)
  1. MERCAPTAMINE BITARTRATE [Suspect]
     Active Substance: CYSTEAMINE
     Dosage: 2100 MG,QD
     Route: 048
  2. METOPROLOL [Concomitant]
     Active Substance: METOPROLOL
     Dosage: UNK
     Route: 065
  3. MERCAPTAMINE BITARTRATE [Suspect]
     Active Substance: CYSTEAMINE
     Dosage: 1500 MG, QD
     Route: 048
     Dates: start: 20080617, end: 20090120
  4. THYREX [Concomitant]
     Active Substance: LEVOTHYROXINE SODIUM
     Dosage: 50 ?G,QD
     Route: 065
     Dates: start: 2007
  5. ALPHACALCIDOL [Concomitant]
     Active Substance: ALFACALCIDOL
     Indication: VITAMIN SUPPLEMENTATION
     Dosage: .5 ?G,QD
     Route: 065
  6. LOSARTAN POTASSIUM. [Concomitant]
     Active Substance: LOSARTAN POTASSIUM
     Dosage: UNK
     Route: 065
     Dates: start: 2007
  7. PREDNISONE. [Concomitant]
     Active Substance: PREDNISONE
     Indication: IMMUNOSUPPRESSION
     Dosage: 5 MG,QD
     Route: 065
     Dates: start: 2007
  8. AMLODIPINE [Concomitant]
     Active Substance: AMLODIPINE BESYLATE
     Indication: HYPERTENSION
     Dosage: 20 MG,QD
     Route: 065
     Dates: start: 2007
  9. MERCAPTAMINE BITARTRATE [Suspect]
     Active Substance: CYSTEAMINE
     Dosage: UNK UNK,QD
     Route: 048
     Dates: start: 1998
  10. COLOFAC /00139402/ [Concomitant]
     Indication: HYPERTENSION
     Dosage: 50 MG,QD
     Route: 065
     Dates: start: 2007
  11. FERROFUMARAAT [Concomitant]
     Dosage: UNK
     Route: 065
  12. SODIUM BICARBONATE. [Concomitant]
     Active Substance: SODIUM BICARBONATE
     Dosage: UNK
     Route: 065
  13. MERCAPTAMINE BITARTRATE [Suspect]
     Active Substance: CYSTEAMINE
     Indication: CYSTINOSIS
     Dosage: 1800 MG,QD
     Route: 048
     Dates: start: 20090220
  14. MERCAPTAMINE BITARTRATE [Suspect]
     Active Substance: CYSTEAMINE
     Dosage: 76 MG/KG,QD
     Route: 048
  15. MERCAPTAMINE BITARTRATE [Suspect]
     Active Substance: CYSTEAMINE
     Dosage: 200 MG,QD
     Route: 048
  16. PROGRAFT [Concomitant]
     Active Substance: TACROLIMUS
     Indication: IMMUNOSUPPRESSION
     Dosage: 8 MG,QD
     Route: 065
     Dates: start: 2007
  17. CELLCEPT [Concomitant]
     Active Substance: MYCOPHENOLATE MOFETIL\MYCOPHENOLATE MOFETIL HYDROCHLORIDE
     Indication: IMMUNOSUPPRESSION
     Dosage: 1 G,QD
     Route: 065
     Dates: start: 2007
  18. LABETALOL [Concomitant]
     Active Substance: LABETALOL\LABETALOL HYDROCHLORIDE
     Indication: HYPERTENSION
     Dosage: 200 MG,QD
     Route: 065
     Dates: start: 2007
  19. MERCAPTAMINE BITARTRATE [Suspect]
     Active Substance: CYSTEAMINE
     Dosage: 1200 MG,QD
     Route: 048
  20. GENOTROPIN [Concomitant]
     Active Substance: SOMATROPIN
     Indication: BLOOD GROWTH HORMONE
     Dosage: 2.8 MG,QD
     Route: 065
     Dates: start: 2007
  21. FLIXOTIDE [Concomitant]
     Active Substance: FLUTICASONE PROPIONATE
     Indication: ASTHMA
     Dosage: UNK
     Route: 065
  22. VENTOLIN [Concomitant]
     Active Substance: ALBUTEROL SULFATE
     Indication: ASTHMA
     Dosage: UNK
     Route: 065

REACTIONS (8)
  - Blood creatinine increased [Not Recovered/Not Resolved]
  - Hypersensitivity [Recovered/Resolved]
  - Dizziness [Recovered/Resolved]
  - Renal impairment [Unknown]
  - Proteinuria [Not Recovered/Not Resolved]
  - Headache [Not Recovered/Not Resolved]
  - Lupus nephritis [Not Recovered/Not Resolved]
  - Vomiting [Recovered/Resolved]

NARRATIVE: CASE EVENT DATE: 200402
